FAERS Safety Report 6425462-X (Version None)
Quarter: 2009Q4

REPORT INFORMATION
  Report Type: 
  Country: None (occurrence: None)
  Receive Date: 20091103
  Receipt Date: 20091026
  Transmission Date: 20100525
  Serious: Yes (Other)
  Sender: FDA-Public Use
  Company Number: RU-PFIZER INC-2009289452

PATIENT
  Age: 60 Year
  Sex: Male

DRUGS (2)
  1. LATANOPROST [Suspect]
     Indication: GLAUCOMA
     Dosage: 1 GTT, 1X/DAY
     Route: 031
     Dates: start: 20090801
  2. TIMOLOL [Concomitant]
     Indication: GLAUCOMA
     Dosage: UNK, 2X/DAY

REACTIONS (1)
  - INTRAOCULAR PRESSURE INCREASED [None]
